FAERS Safety Report 8730208 (Version 8)
Quarter: 2014Q2

REPORT INFORMATION
  Report Type: Spontaneous
  Country: US (occurrence: US)
  Receive Date: 20120817
  Receipt Date: 20140422
  Transmission Date: 20141212
  Serious: Yes (Hospitalization, Other)
  Sender: FDA-Public Use
  Company Number: US-009507513-1207USA001835

PATIENT
  Sex: Female
  Weight: 59.86 kg

DRUGS (8)
  1. FOSAMAX [Suspect]
     Indication: OSTEOPOROSIS
     Dosage: 10 MG, UNK
     Route: 048
     Dates: start: 20001009, end: 200205
  2. FOSAMAX [Suspect]
     Dosage: QW
     Route: 048
     Dates: start: 20010927, end: 200205
  3. HORMONES (UNSPECIFIED) [Concomitant]
     Dosage: UNK
     Dates: start: 1991, end: 2012
  4. LEVSIN [Concomitant]
     Indication: GASTROOESOPHAGEAL REFLUX DISEASE
     Dosage: UNK
     Route: 060
  5. INDERAL LA [Concomitant]
     Indication: MITRAL VALVE PROLAPSE
  6. ACIPHEX [Concomitant]
     Indication: GASTROOESOPHAGEAL REFLUX DISEASE
  7. XANAX [Concomitant]
     Indication: ANXIETY
     Dosage: 0.5 MG, QHS
  8. DURACEF (CEFADROXIL) [Concomitant]
     Indication: MIGRAINE

REACTIONS (50)
  - Hip fracture [Recovered/Resolved]
  - Intramedullary rod insertion [Unknown]
  - Osteonecrosis [Unknown]
  - Fracture nonunion [Recovered/Resolved]
  - Bone graft [Unknown]
  - Medical device removal [Unknown]
  - Device breakage [Unknown]
  - Internal fixation of fracture [Unknown]
  - Internal fixation of fracture [Unknown]
  - Adverse event [Unknown]
  - Device failure [Unknown]
  - Wrist fracture [Unknown]
  - Hypertension [Unknown]
  - Middle insomnia [Unknown]
  - Insomnia [Unknown]
  - Bursitis [Unknown]
  - Arthropathy [Unknown]
  - Chest pain [Unknown]
  - Cataract [Unknown]
  - Eye disorder [Unknown]
  - Abdominal tenderness [Unknown]
  - Arthropathy [Unknown]
  - Osteoarthritis [Unknown]
  - Intervertebral disc degeneration [Not Recovered/Not Resolved]
  - Osteoarthritis [Unknown]
  - Pollakiuria [Unknown]
  - Pain [Not Recovered/Not Resolved]
  - Osteoarthritis [Unknown]
  - Vitamin D deficiency [Unknown]
  - Tenosynovitis [Unknown]
  - Peripheral swelling [Unknown]
  - Joint effusion [Unknown]
  - Osteoarthritis [Not Recovered/Not Resolved]
  - Weight increased [Unknown]
  - Neuropathy peripheral [Unknown]
  - Irritable bowel syndrome [Unknown]
  - Cystitis [Unknown]
  - Large intestine polyp [Unknown]
  - Rotator cuff syndrome [Not Recovered/Not Resolved]
  - Hiatus hernia [Unknown]
  - Cervical spinal stenosis [Unknown]
  - Rotator cuff syndrome [Unknown]
  - Road traffic accident [Unknown]
  - Spondylolisthesis [Unknown]
  - Intervertebral disc protrusion [Unknown]
  - Spinal disorder [Unknown]
  - Cervical radiculopathy [Unknown]
  - Spinal compression fracture [Unknown]
  - Abdominal pain [Unknown]
  - Back pain [Not Recovered/Not Resolved]
